FAERS Safety Report 5673989-0 (Version None)
Quarter: 2008Q1

REPORT INFORMATION
  Report Type: 
  Country: None (occurrence: None)
  Receive Date: 20080319
  Receipt Date: 20080319
  Transmission Date: 20080703
  Serious: Yes (Hospitalization)
  Sender: FDA-Public Use
  Company Number: None

PATIENT
  Age: 77 Year
  Sex: Female
  Weight: 64.8 kg

DRUGS (4)
  1. VANCOMYCIN [Suspect]
     Indication: STAPHYLOCOCCAL INFECTION
     Dosage: 1800  OTO  IV
     Route: 042
     Dates: start: 20071126
  2. TOPROL [Concomitant]
  3. NORVASC [Concomitant]
  4. ZOSYN [Concomitant]

REACTIONS (5)
  - EOSINOPHILS URINE PRESENT [None]
  - NEPHRITIS INTERSTITIAL [None]
  - RENAL FAILURE ACUTE [None]
  - RENAL FAILURE CHRONIC [None]
  - RENAL TUBULAR NECROSIS [None]
